FAERS Safety Report 7028069-9 (Version None)
Quarter: 2010Q3

REPORT INFORMATION
  Report Type: 
  Country: None (occurrence: None)
  Receive Date: 20100930
  Receipt Date: 20100922
  Transmission Date: 20110219
  Serious: Yes (Hospitalization)
  Sender: FDA-Public Use
  Company Number: WAES 1009USA01844

PATIENT
  Age: 73 Year
  Sex: Male

DRUGS (9)
  1. COZAAR [Suspect]
     Indication: HYPERTENSION
     Dosage: 50 MG/BID PO
     Route: 048
     Dates: start: 20070418
  2. ASPIRIN [Suspect]
     Indication: ANGINA PECTORIS
     Dosage: 100 MG/DAILY PO ; 100 MG/DAILY PO
     Route: 048
     Dates: end: 20100703
  3. ASPIRIN [Suspect]
     Indication: ANGINA PECTORIS
     Dosage: 100 MG/DAILY PO ; 100 MG/DAILY PO
     Route: 048
     Dates: start: 20100710, end: 20100819
  4. BISOPROLOL FUMARATE [Suspect]
     Indication: HYPERTENSION
     Dosage: 2.5 MG/DAILY PO
     Route: 048
     Dates: start: 20070801
  5. BEPRICOR (BEPRIDIL HYDROCHLORIDE) [Suspect]
     Indication: ATRIAL FIBRILLATION
     Dosage: 50 MG/BID PO
     Route: 048
     Dates: start: 20090204
  6. LIPIDIL [Suspect]
     Indication: HYPERLIPIDAEMIA
     Dosage: 67 MG/BID PO
     Route: 048
     Dates: start: 20060712
  7. TAB ATELEC (CILNIDIPINE) [Suspect]
     Indication: HYPERTENSION
     Dosage: 5 MG/DAILY PO
     Route: 048
     Dates: start: 20100520
  8. STUDY DRUG (UNSPECIFIED) [Suspect]
     Dates: start: 20100324, end: 20100703
  9. STUDY DRUG (UNSPECIFIED) [Suspect]
     Dates: start: 20100710, end: 20100819

REACTIONS (1)
  - GASTRIC CANCER [None]
